FAERS Safety Report 20655261 (Version 1)
Quarter: 2022Q1

REPORT INFORMATION
  Report Type: Report from Study
  Country: US (occurrence: US)
  Receive Date: 20220330
  Receipt Date: 20220330
  Transmission Date: 20220423
  Serious: Yes (Other)
  Sender: FDA-Public Use
  Company Number: US-SHIRE-US202018456

PATIENT
  Sex: Female

DRUGS (2)
  1. HUMAN IMMUNOGLOBULIN G [Suspect]
     Active Substance: HUMAN IMMUNOGLOBULIN G
     Indication: Primary immunodeficiency syndrome
     Dosage: 15 GRAM, EVERY OTHER WEEK
     Route: 042
  2. METHOTREXATE [Concomitant]
     Active Substance: METHOTREXATE
     Indication: Deafness

REACTIONS (11)
  - Ankylosing spondylitis [Unknown]
  - Deafness [Unknown]
  - Autoimmune thyroiditis [Unknown]
  - Rosacea [Unknown]
  - Axial spondyloarthritis [Unknown]
  - Multiple allergies [Unknown]
  - Weight increased [Unknown]
  - Carbon dioxide decreased [Unknown]
  - Lymphocyte count increased [Unknown]
  - Food allergy [Unknown]
  - Dairy intolerance [Unknown]
